FAERS Safety Report 19511724 (Version 4)
Quarter: 2021Q3

REPORT INFORMATION
  Report Type: Spontaneous
  Country: US (occurrence: US)
  Receive Date: 20210709
  Receipt Date: 20210804
  Transmission Date: 20211014
  Serious: Yes (Hospitalization, Other)
  Sender: FDA-Public Use
  Company Number: US-ACORDA-ACO_169358_2021

PATIENT
  Age: 60 Year
  Sex: Male

DRUGS (7)
  1. TYSABRI [Suspect]
     Active Substance: NATALIZUMAB
     Dosage: 300 MILLIGRAM, MONTHLY
     Route: 042
  2. DALFAMPRIDINE. [Suspect]
     Active Substance: DALFAMPRIDINE
     Indication: GAIT DISTURBANCE
     Dosage: 10 MILLIGRAM
     Route: 048
  3. NERVE PAIN MEDICATION [Suspect]
     Active Substance: UNSPECIFIED INGREDIENT
     Indication: NEURALGIA
     Dosage: UNK
     Route: 065
  4. BLOOD PRESSURE MEDICATION [Suspect]
     Active Substance: UNSPECIFIED INGREDIENT
     Indication: PRODUCT USED FOR UNKNOWN INDICATION
     Dosage: UNK
     Route: 065
  5. TYSABRI [Suspect]
     Active Substance: NATALIZUMAB
     Indication: MULTIPLE SCLEROSIS
     Dosage: 300 MG EVERY 4 WEEKS
     Route: 042
     Dates: start: 20150803, end: 202003
  6. TYSABRI [Suspect]
     Active Substance: NATALIZUMAB
     Dosage: UNK
     Route: 065
     Dates: start: 202101
  7. TYSABRI [Suspect]
     Active Substance: NATALIZUMAB
     Dosage: UNK
     Route: 065
     Dates: start: 20150803

REACTIONS (22)
  - Dysstasia [Not Recovered/Not Resolved]
  - Fine motor skill dysfunction [Unknown]
  - Fall [Recovered/Resolved]
  - Intervertebral disc disorder [Not Recovered/Not Resolved]
  - Infusion site bruising [Not Recovered/Not Resolved]
  - Muscle atrophy [Unknown]
  - Anal incontinence [Not Recovered/Not Resolved]
  - Pruritus [Recovered/Resolved]
  - Asthenia [Unknown]
  - Spondylitis [Not Recovered/Not Resolved]
  - Memory impairment [Unknown]
  - Stress [Recovered/Resolved]
  - Dyspnoea [Unknown]
  - General physical health deterioration [Not Recovered/Not Resolved]
  - Cough [Recovered/Resolved]
  - Poor venous access [Unknown]
  - Mobility decreased [Not Recovered/Not Resolved]
  - Fatigue [Recovered/Resolved]
  - Urinary retention [Not Recovered/Not Resolved]
  - Multiple sclerosis relapse [Recovered/Resolved]
  - Hypokinesia [Not Recovered/Not Resolved]
  - Middle insomnia [Unknown]

NARRATIVE: CASE EVENT DATE: 202010
